FAERS Safety Report 17231980 (Version 21)
Quarter: 2023Q2

REPORT INFORMATION
  Report Type: Report from Study
  Country: US (occurrence: US)
  Receive Date: 20200103
  Receipt Date: 20230404
  Transmission Date: 20230721
  Serious: Yes (Hospitalization, Other)
  Sender: FDA-Public Use
  Company Number: US-GLAXOSMITHKLINE-US2019TSO170527

PATIENT

DRUGS (29)
  1. NIRAPARIB [Suspect]
     Active Substance: NIRAPARIB
     Indication: Ovarian cancer
     Dosage: 200 MG, QD
     Route: 048
     Dates: start: 20190910, end: 20190924
  2. NIRAPARIB [Suspect]
     Active Substance: NIRAPARIB
     Dosage: 100 MG, QD IN THE EVENING WITH FOOD
     Route: 048
  3. NIRAPARIB [Suspect]
     Active Substance: NIRAPARIB
     Dosage: 300 MG, QD
     Route: 048
     Dates: end: 20191227
  4. NIRAPARIB [Suspect]
     Active Substance: NIRAPARIB
     Dosage: 100 MG, QD
  5. NIRAPARIB [Suspect]
     Active Substance: NIRAPARIB
     Dosage: 100 MG, QD
     Route: 048
  6. NIRAPARIB [Suspect]
     Active Substance: NIRAPARIB
     Dosage: 100 MG, QD
     Route: 048
  7. NIRAPARIB [Suspect]
     Active Substance: NIRAPARIB
     Dosage: 100 MG, QD
     Route: 048
  8. NIRAPARIB [Suspect]
     Active Substance: NIRAPARIB
     Dosage: 100 MG, QD
  9. NIRAPARIB [Suspect]
     Active Substance: NIRAPARIB
     Dosage: 100 MG, QD (IN THE EVENING WITH FOOD)
  10. NIRAPARIB [Suspect]
     Active Substance: NIRAPARIB
     Dosage: 100 MG, QPM
  11. NIRAPARIB [Suspect]
     Active Substance: NIRAPARIB
     Dosage: 100 MG, QD
     Route: 048
  12. NIRAPARIB [Suspect]
     Active Substance: NIRAPARIB
     Dosage: 100 MG, QD
     Route: 048
  13. NIRAPARIB [Suspect]
     Active Substance: NIRAPARIB
     Dosage: 100 MG, QD
     Route: 048
  14. NIRAPARIB [Suspect]
     Active Substance: NIRAPARIB
     Dosage: 100 MG, QD
     Route: 048
  15. NIRAPARIB [Suspect]
     Active Substance: NIRAPARIB
     Dosage: 100 MG, QD
     Route: 048
  16. NIRAPARIB [Suspect]
     Active Substance: NIRAPARIB
     Dosage: 100 MG, QD
     Route: 048
  17. NIRAPARIB [Suspect]
     Active Substance: NIRAPARIB
     Dosage: 100 MG, QD
     Route: 048
  18. NIRAPARIB [Suspect]
     Active Substance: NIRAPARIB
     Dosage: 100 MG, QD AT THE SAME TIME EVERYDAY
     Route: 048
  19. CIPROFLOXACIN [Suspect]
     Active Substance: CIPROFLOXACIN
     Dosage: UNK
  20. ADVAIR HFA [Concomitant]
     Active Substance: FLUTICASONE PROPIONATE\SALMETEROL XINAFOATE
     Indication: Product used for unknown indication
     Dosage: UNK 115-21 MCG HFA AER AD
  21. CALCIUM\CHOLECALCIFEROL [Concomitant]
     Active Substance: CALCIUM\CHOLECALCIFEROL
     Indication: Product used for unknown indication
     Dosage: UNK 600MG-12.5 ER
  22. ALBUTEROL SULFATE [Concomitant]
     Active Substance: ALBUTEROL SULFATE
     Indication: Product used for unknown indication
     Dosage: UNK
  23. MAGNESIUM [Concomitant]
     Active Substance: MAGNESIUM
     Indication: Product used for unknown indication
     Dosage: 400 MG
  24. VENTOLIN HFA [Concomitant]
     Active Substance: ALBUTEROL SULFATE
     Indication: Product used for unknown indication
     Dosage: 90 ?G HFA AER AD
  25. CYCLOBENZAPRINE HYDROCHLORIDE [Concomitant]
     Active Substance: CYCLOBENZAPRINE HYDROCHLORIDE
     Indication: Product used for unknown indication
     Dosage: 10 MG
  26. FIORICET [Concomitant]
     Active Substance: ACETAMINOPHEN\BUTALBITAL\CAFFEINE
     Indication: Product used for unknown indication
     Dosage: UNK 50-300-40
  27. PLAQUENIL [Concomitant]
     Active Substance: HYDROXYCHLOROQUINE SULFATE
     Indication: Product used for unknown indication
     Dosage: 200 MG
  28. SYNTHROID [Concomitant]
     Active Substance: LEVOTHYROXINE SODIUM
     Indication: Product used for unknown indication
     Dosage: 50 ?G
  29. ELIQUIS [Concomitant]
     Active Substance: APIXABAN
     Indication: Product used for unknown indication
     Dosage: UNK

REACTIONS (39)
  - Lower respiratory tract infection [Unknown]
  - Chest pain [Unknown]
  - Cough [Not Recovered/Not Resolved]
  - Appendicitis [Unknown]
  - Mycobacterium avium complex infection [Unknown]
  - Atypical mycobacterial infection [Unknown]
  - Gastrooesophageal reflux disease [Not Recovered/Not Resolved]
  - Motion sickness [Unknown]
  - Computerised tomogram pelvis abnormal [Unknown]
  - White blood cell count decreased [Not Recovered/Not Resolved]
  - Nausea [Recovering/Resolving]
  - Fatigue [Not Recovered/Not Resolved]
  - Platelet count decreased [Not Recovered/Not Resolved]
  - Neutrophil count decreased [Unknown]
  - Constipation [Not Recovered/Not Resolved]
  - Abdominal pain [Not Recovered/Not Resolved]
  - Ill-defined disorder [Unknown]
  - Insomnia [Not Recovered/Not Resolved]
  - Musculoskeletal chest pain [Unknown]
  - Back pain [Unknown]
  - Gallbladder disorder [Unknown]
  - Laboratory test abnormal [Recovering/Resolving]
  - Lung disorder [Unknown]
  - Biopsy lung [Unknown]
  - Red blood cell count decreased [Not Recovered/Not Resolved]
  - Headache [Not Recovered/Not Resolved]
  - Tendonitis [Unknown]
  - Diarrhoea [Unknown]
  - Hepatic enzyme increased [Unknown]
  - Tachycardia [Unknown]
  - Blood sodium decreased [Unknown]
  - Dyspnoea [Unknown]
  - Arthralgia [Unknown]
  - Abdominal pain upper [Not Recovered/Not Resolved]
  - Sneezing [Unknown]
  - Nasopharyngitis [Unknown]
  - Product dose omission issue [Unknown]
  - Underdose [Unknown]
  - Product dose omission in error [Unknown]

NARRATIVE: CASE EVENT DATE: 20190901
